FAERS Safety Report 5695461-4 (Version None)
Quarter: 2008Q2

REPORT INFORMATION
  Report Type: 
  Country: None (occurrence: None)
  Receive Date: 20080403
  Receipt Date: 20080318
  Transmission Date: 20081010
  Serious: No
  Sender: FDA-Public Use
  Company Number: 002#2#2008-00132

PATIENT
  Sex: Female
  Weight: 74.3899 kg

DRUGS (10)
  1. NEUPRO [Suspect]
     Indication: RESTLESS LEGS SYNDROME
     Dosage: 2MG/24H,1 IN 1 D, TRANSDERMAL; 4MG/24H,1 IN 1 D, TRANSDERMAL
     Route: 062
  2. MIRAPEX [Concomitant]
  3. LEVOXYL [Concomitant]
  4. IRON OTC [Concomitant]
  5. CA OTC [Concomitant]
  6. VITAMIN C OTC [Concomitant]
  7. ASPIRIN [Concomitant]
  8. GLUCOSAMINE CHONDRAITIN OTC [Concomitant]
  9. LUNESTA [Concomitant]
  10. ESTROGEN CREAM [Concomitant]

REACTIONS (8)
  - APPLICATION SITE IRRITATION [None]
  - APPLICATION SITE REACTION [None]
  - APPLICATION SITE URTICARIA [None]
  - DIZZINESS [None]
  - DRUG INEFFECTIVE [None]
  - NAUSEA [None]
  - PHARMACEUTICAL PRODUCT COMPLAINT [None]
  - SEDATION [None]
